FAERS Safety Report 6918141-3 (Version None)
Quarter: 2010Q3

REPORT INFORMATION
  Report Type: 
  Country: None (occurrence: None)
  Receive Date: 20100810
  Receipt Date: 20100802
  Transmission Date: 20110219
  Serious: Yes (Death)
  Sender: FDA-Public Use
  Company Number: US-AMGEN-QUU428275

PATIENT
  Sex: Male

DRUGS (1)
  1. NPLATE [Suspect]

REACTIONS (1)
  - DEATH [None]
